FAERS Safety Report 7770924-6 (Version None)
Quarter: 2011Q3

REPORT INFORMATION
  Report Type: 
  Country: None (occurrence: None)
  Receive Date: 20110922
  Receipt Date: 20110718
  Transmission Date: 20111222
  Serious: No
  Sender: FDA-Public Use
  Company Number: US-ASTRAZENECA-2011SE42873

PATIENT
  Age: 39 Year
  Sex: Female

DRUGS (2)
  1. SEROQUEL [Suspect]
     Indication: AFFECTIVE DISORDER
     Dosage: 200 MG IN THE MORNING AND 600 MG AT NIGHT
     Route: 048
     Dates: start: 20060101, end: 20080101
  2. SEROQUEL [Suspect]
     Indication: SLEEP DISORDER THERAPY
     Dosage: 200 MG IN THE MORNING AND 600 MG AT NIGHT
     Route: 048
     Dates: start: 20060101, end: 20080101

REACTIONS (2)
  - SOMNOLENCE [None]
  - OFF LABEL USE [None]
